FAERS Safety Report 6573258-0 (Version None)
Quarter: 2010Q1

REPORT INFORMATION
  Report Type: 
  Country: None (occurrence: None)
  Receive Date: 20100208
  Receipt Date: 20100125
  Transmission Date: 20100710
  Serious: Yes (Other)
  Sender: FDA-Public Use
  Company Number: US-BRISTOL-MYERS SQUIBB COMPANY-14956056

PATIENT
  Age: 51 Year
  Sex: Male

DRUGS (3)
  1. EFAVIRENZ [Suspect]
     Indication: HIV INFECTION
     Route: 048
  2. ABACAVIR SULFATE [Suspect]
     Indication: HIV INFECTION
     Route: 048
  3. NELFINAVIR MESYLATE [Suspect]
     Indication: HIV INFECTION
     Route: 065

REACTIONS (3)
  - DRUG RESISTANCE [None]
  - FALL [None]
  - PERIPHERAL NERVE PALSY [None]
